FAERS Safety Report 12497541 (Version 4)
Quarter: 2018Q3

REPORT INFORMATION
  Report Type: Spontaneous
  Country: SI (occurrence: SI)
  Receive Date: 20160625
  Receipt Date: 20180731
  Transmission Date: 20181010
  Serious: Yes (Death)
  Sender: FDA-Public Use
  Company Number: PHHY2016SI086584

PATIENT
  Age: 51 Year
  Sex: Female

DRUGS (3)
  1. CICLOSPORIN [Suspect]
     Active Substance: CYCLOSPORINE
     Indication: IMMUNOSUPPRESSANT DRUG THERAPY
  2. CICLOSPORIN [Suspect]
     Active Substance: CYCLOSPORINE
     Indication: ALLOGENIC BONE MARROW TRANSPLANTATION THERAPY
     Dosage: UNK
     Route: 065
  3. CICLOSPORIN [Suspect]
     Active Substance: CYCLOSPORINE
     Indication: PROPHYLAXIS AGAINST GRAFT VERSUS HOST DISEASE

REACTIONS (13)
  - Agitation [Fatal]
  - Disorientation [Fatal]
  - Hyporesponsive to stimuli [Fatal]
  - Dyskinesia [Fatal]
  - Confusional state [Fatal]
  - Posterior reversible encephalopathy syndrome [Fatal]
  - Parkinsonism [Fatal]
  - Hypokinesia [Fatal]
  - Reduced facial expression [Fatal]
  - Muscle rigidity [Fatal]
  - Dystonia [Fatal]
  - Tremor [Fatal]
  - Bradykinesia [Fatal]
